FAERS Safety Report 11891309 (Version 1)
Quarter: 2016Q1

REPORT INFORMATION
  Report Type: Spontaneous
  Country: US (occurrence: US)
  Receive Date: 20160106
  Receipt Date: 20160106
  Transmission Date: 20160526
  Serious: No
  Sender: FDA-Public Use
  Company Number: US-TEVA-622152ACC

PATIENT
  Age: 28 Year
  Sex: Female
  Weight: 78.54 kg

DRUGS (2)
  1. IRON [Concomitant]
     Active Substance: IRON
     Indication: SICKLE CELL TRAIT
  2. PARAGARD T 380A [Suspect]
     Active Substance: COPPER
     Indication: CONTRACEPTION
     Dates: start: 20151110, end: 20151222

REACTIONS (1)
  - Device expulsion [Recovered/Resolved]

NARRATIVE: CASE EVENT DATE: 20151222
